FAERS Safety Report 21952714 (Version 1)
Quarter: 2023Q1

REPORT INFORMATION
  Report Type: Spontaneous
  Country: US (occurrence: US)
  Receive Date: 20230204
  Receipt Date: 20230204
  Transmission Date: 20230418
  Serious: No
  Sender: FDA-Public Use
  Company Number: US-AUROBINDO-AUR-APL-2022-005917

PATIENT
  Sex: Female

DRUGS (2)
  1. DULOXETINE [Suspect]
     Active Substance: DULOXETINE
     Indication: Neuropathy peripheral
     Dosage: 1 DOSAGE FORM, TWO TIMES A DAY (1 TABLET IN THE MORNING AND 1 IN THE EVENING,)
     Route: 065
     Dates: start: 20220202
  2. DULOXETINE [Suspect]
     Active Substance: DULOXETINE
     Dosage: 1 DOSAGE FORM, 3 TIMES A DAY (01 IN THE MORNING AND 02 IN THE EVENING)
     Route: 065

REACTIONS (1)
  - Dysuria [Unknown]
